FAERS Safety Report 18909078 (Version 1)
Quarter: 2021Q1

REPORT INFORMATION
  Report Type: Spontaneous
  Country: US (occurrence: US)
  Receive Date: 20210217
  Receipt Date: 20210217
  Transmission Date: 20210420
  Serious: Yes (Life-Threatening)
  Sender: FDA-Public Use
  Company Number: None

PATIENT
  Age: 67 Year
  Sex: Female
  Weight: 63 kg

DRUGS (20)
  1. VICTOZA [Suspect]
     Active Substance: LIRAGLUTIDE
     Indication: TYPE 2 DIABETES MELLITUS
     Route: 058
     Dates: start: 20201101, end: 20201201
  2. GLIMEPERIDE [Concomitant]
     Active Substance: GLIMEPIRIDE
     Dates: start: 20201117
  3. FIBROCON [Concomitant]
     Dates: start: 20191029
  4. VITAMIN C [Concomitant]
     Active Substance: ASCORBIC ACID
     Dates: start: 20191029
  5. GLUCOSAMINE CHONDROITIN [Concomitant]
     Active Substance: CHONDROITIN SULFATE (BOVINE)\GLUCOSAMINE HYDROCHLORIDE
     Dates: start: 20191119
  6. LEVOTHYROXINE. [Concomitant]
     Active Substance: LEVOTHYROXINE
     Dates: start: 20191029
  7. TUMERIC [Concomitant]
     Active Substance: HERBALS\TURMERIC
     Dates: start: 20200918
  8. CALCIUM/VIT. D 600/800 [Concomitant]
     Dates: start: 20191029
  9. CINNAMON 500 MG [Concomitant]
     Dates: start: 20191029
  10. CYCLOBENAZPRINE [Concomitant]
     Active Substance: CYCLOBENZAPRINE
     Dates: start: 20200128
  11. MULTIVITAMIN [Concomitant]
     Active Substance: VITAMINS
     Dates: start: 20191029
  12. VITAMIN E [Concomitant]
     Active Substance: .ALPHA.-TOCOPHEROL
     Dates: start: 20191029
  13. BIOTIN 10 MG [Concomitant]
     Dates: start: 20191029
  14. LORATIDINE [Concomitant]
     Active Substance: LORATADINE
     Dates: start: 20191029
  15. PIMECROLIMUS CREAM [Concomitant]
     Active Substance: PIMECROLIMUS
     Dates: start: 20200723
  16. VENTOLIN [Concomitant]
     Active Substance: ALBUTEROL SULFATE
     Dates: start: 20191029
  17. VITAMIN D3 [Concomitant]
     Active Substance: CHOLECALCIFEROL
     Dates: start: 20191029
  18. CLOBETASOL PROPRIONATE [Concomitant]
     Active Substance: CLOBETASOL PROPIONATE
     Dates: start: 20200723
  19. MONTELUKAST [Concomitant]
     Active Substance: MONTELUKAST SODIUM
     Dates: start: 20200128
  20. OXYBUTYNIN. [Concomitant]
     Active Substance: OXYBUTYNIN CHLORIDE
     Dates: start: 20191029

REACTIONS (1)
  - Medullary thyroid cancer [None]
